FAERS Safety Report 9799876 (Version 1)
Quarter: 2014Q1

REPORT INFORMATION
  Report Type: Spontaneous
  Country: US (occurrence: US)
  Receive Date: 20140106
  Receipt Date: 20140106
  Transmission Date: 20141002
  Serious: Yes (Death)
  Sender: FDA-Public Use
  Company Number: US-GLAXOSMITHKLINE-A1055441A

PATIENT
  Age: 64 Year
  Sex: Male

DRUGS (1)
  1. VENTOLIN [Suspect]
     Indication: DYSPNOEA
     Route: 065
     Dates: start: 20130430

REACTIONS (1)
  - Death [Fatal]
